FAERS Safety Report 8772203 (Version 2)
Quarter: 2012Q4

REPORT INFORMATION
  Report Type: 
  Country: JP (occurrence: JP)
  Receive Date: 20120905
  Receipt Date: 20120927
  Transmission Date: 20130627
  Serious: Yes (Hospitalization, Other)
  Sender: FDA-Public Use
  Company Number: JP-PFIZER INC-2012215008

PATIENT
  Age: 61 Year
  Sex: Female

DRUGS (1)
  1. CELECOX [Suspect]
     Indication: RHEUMATOID ARTHRITIS
     Dosage: UNK
     Route: 048
     Dates: start: 2010, end: 201101

REACTIONS (1)
  - Protein-losing gastroenteropathy [Not Recovered/Not Resolved]
